FAERS Safety Report 18265395 (Version 1)
Quarter: 2020Q3

REPORT INFORMATION
  Report Type: Other
  Country: US (occurrence: US)
  Receive Date: 20200914
  Receipt Date: 20200914
  Transmission Date: 20201103
  Serious: No
  Sender: FDA-Public Use
  Company Number: US-LEADIANT BIOSCIENCES INC-2020STPI000193

PATIENT
  Sex: Female

DRUGS (7)
  1. GLEOSTINE [Concomitant]
     Active Substance: LOMUSTINE
  2. ZOFRAN [Concomitant]
     Active Substance: ONDANSETRON HYDROCHLORIDE
  3. KEPPRA [Concomitant]
     Active Substance: LEVETIRACETAM
  4. VIMPAT [Concomitant]
     Active Substance: LACOSAMIDE
  5. KLONOPIN [Concomitant]
     Active Substance: CLONAZEPAM
  6. MATULANE [Suspect]
     Active Substance: PROCARBAZINE HYDROCHLORIDE
     Indication: BRAIN NEOPLASM MALIGNANT
     Dosage: 50 MG, 2 CAPSULES FOR 14 DAYS EVERY 6 WEEKS
     Route: 048
     Dates: start: 20200325
  7. DILANTIN [Concomitant]
     Active Substance: PHENYTOIN

REACTIONS (1)
  - Decreased appetite [Not Recovered/Not Resolved]
